FAERS Safety Report 6969529-6 (Version None)
Quarter: 2010Q3

REPORT INFORMATION
  Report Type: 
  Country: None (occurrence: None)
  Receive Date: 20100907
  Receipt Date: 20100907
  Transmission Date: 20110219
  Serious: Yes (Other)
  Sender: FDA-Public Use
  Company Number: None

PATIENT
  Age: 30 Year
  Sex: Female
  Weight: 103.4201 kg

DRUGS (1)
  1. SERTRALINE HYDROCHLORIDE [Suspect]
     Indication: DEPRESSION
     Dosage: 1 TABLET 1 X DAY PO
     Route: 048
     Dates: start: 20100301, end: 20100901

REACTIONS (8)
  - AGGRESSION [None]
  - CONFUSIONAL STATE [None]
  - DREAMY STATE [None]
  - HALLUCINATION [None]
  - HYPERHIDROSIS [None]
  - SLEEP TERROR [None]
  - TREMOR [None]
  - VOMITING [None]
